FAERS Safety Report 9171727 (Version 1)
Quarter: 2013Q1

REPORT INFORMATION
  Report Type: Spontaneous
  Country: IT (occurrence: None)
  Receive Date: 20130311
  Receipt Date: 20130311
  Transmission Date: 20140127
  Serious: Yes (Other)
  Sender: FDA-Public Use
  Company Number: 2013034938

PATIENT
  Age: 40 Year
  Sex: Female

DRUGS (1)
  1. BERINERT P (C1 ESTERASE INHIBITOR, HUMAN) [Suspect]
     Indication: HEREDITARY ANGIOEDEMA
     Dosage: 500 IU TOTAL
     Route: 042
     Dates: start: 20121212

REACTIONS (2)
  - Abdominal pain [None]
  - Underdose [None]
